FAERS Safety Report 4367357-1 (Version None)
Quarter: 2004Q2

REPORT INFORMATION
  Report Type: 
  Country: None (occurrence: None)
  Receive Date: 20040524
  Receipt Date: 20040310
  Transmission Date: 20050107
  Serious: Yes (Other)
  Sender: FDA-Public Use
  Company Number: 200402065

PATIENT
  Age: 82 Year
  Sex: Female
  Weight: 48.9885 kg

DRUGS (4)
  1. ELESTAT [Suspect]
     Indication: EYE PRURITUS
     Dosage: 2 DROP BID EYE
     Route: 047
     Dates: start: 20040309, end: 20040310
  2. ELESTAT [Suspect]
     Indication: EYE PRURITUS
  3. RESTASIS [Concomitant]
  4. ARTIFICIAL TEARS [Concomitant]

REACTIONS (3)
  - DRUG INEFFECTIVE [None]
  - EYE IRRITATION [None]
  - EYE PRURITUS [None]
